FAERS Safety Report 8957329 (Version 1)
Quarter: 2012Q4

REPORT INFORMATION
  Report Type: 
  Country: FR (occurrence: FR)
  Receive Date: 20121210
  Receipt Date: 20121210
  Transmission Date: 20130627
  Serious: Yes (Other)
  Sender: FDA-Public Use
  Company Number: FR-ROCHE-1158555

PATIENT
  Age: 74 Year
  Sex: Female

DRUGS (3)
  1. ROCEPHINE [Suspect]
     Indication: BRONCHITIS
     Route: 042
     Dates: start: 20121117, end: 20121120
  2. PULMICORT [Concomitant]
     Route: 065
  3. PREDNISOLONE [Concomitant]
     Route: 065

REACTIONS (4)
  - Incorrect route of drug administration [Unknown]
  - Fatigue [Recovered/Resolved]
  - Blood pressure abnormal [Recovered/Resolved]
  - Tachycardia [Recovered/Resolved]
